FAERS Safety Report 4743381-1 (Version None)
Quarter: 2005Q3

REPORT INFORMATION
  Report Type: 
  Country: None (occurrence: None)
  Receive Date: 20050809
  Receipt Date: 20050727
  Transmission Date: 20060218
  Serious: Yes (Hospitalization, Other)
  Sender: FDA-Public Use
  Company Number: 189394

PATIENT
  Age: 39 Year
  Sex: Male
  Weight: 117.9352 kg

DRUGS (12)
  1. AVONEX [Suspect]
     Indication: MULTIPLE SCLEROSIS
     Dosage: IM ; 30 UG QW IM
     Route: 030
     Dates: start: 20000724, end: 20000801
  2. AVONEX [Suspect]
     Indication: MULTIPLE SCLEROSIS
     Dosage: IM ; 30 UG QW IM
     Route: 030
     Dates: start: 20000801
  3. BLADDER MEDICATION (NOS) [Concomitant]
  4. ANTIDEPRESSANT (NOS) [Concomitant]
  5. SONATA [Concomitant]
  6. FOSAMAX [Concomitant]
  7. TOPAMAX [Concomitant]
  8. PREVACID [Concomitant]
  9. CARDURA [Concomitant]
  10. CELLCEPT [Concomitant]
  11. PHENERGAN [Concomitant]
  12. NOVANTRONE [Concomitant]

REACTIONS (2)
  - PROGRESSIVE MULTIPLE SCLEROSIS [None]
  - SKIN CANCER [None]
